FAERS Safety Report 7604163-6 (Version None)
Quarter: 2011Q3

REPORT INFORMATION
  Report Type: 
  Country: None (occurrence: None)
  Receive Date: 20110712
  Receipt Date: 20101228
  Transmission Date: 20111222
  Serious: No
  Sender: FDA-Public Use
  Company Number: US-BRISTOL-MYERS SQUIBB COMPANY-15457112

PATIENT
  Age: 40 Year
  Sex: Female

DRUGS (3)
  1. MELOXICAM [Concomitant]
  2. TOBRAMYCIN SULFATE [Suspect]
     Indication: CYSTIC FIBROSIS
     Dosage: 1DF=300MG/5ML
  3. LEVAQUIN [Suspect]
     Indication: INFECTION

REACTIONS (1)
  - INFECTION [None]
